FAERS Safety Report 7333177-9 (Version None)
Quarter: 2011Q1

REPORT INFORMATION
  Report Type: 
  Country: None (occurrence: None)
  Receive Date: 20110304
  Receipt Date: 20110221
  Transmission Date: 20110831
  Serious: Yes (Hospitalization)
  Sender: FDA-Public Use
  Company Number: US-JNJFOC-20081002058

PATIENT
  Sex: Male
  Weight: 88.6 kg

DRUGS (17)
  1. DEMEROL [Concomitant]
     Indication: PAIN
     Route: 048
  2. IRON [Concomitant]
     Indication: IRON DEFICIENCY ANAEMIA
     Route: 042
  3. REMICADE [Suspect]
     Route: 042
  4. PREDNISONE [Concomitant]
     Route: 048
  5. PREVACID [Concomitant]
     Indication: GASTROOESOPHAGEAL REFLUX DISEASE
     Route: 048
  6. BENADRYL [Concomitant]
     Indication: PREMEDICATION
     Route: 042
  7. PREDNISONE [Concomitant]
     Indication: PYODERMA GANGRENOSUM
     Route: 048
  8. LIDOCAINE [Concomitant]
     Indication: PAIN
     Route: 061
  9. PROZAC [Concomitant]
     Indication: DEPRESSION
     Route: 048
  10. LIDOCAINE +EPI [Concomitant]
     Indication: LOCAL ANAESTHESIA
     Route: 023
  11. EMLA [Concomitant]
     Indication: LOCAL ANAESTHESIA
     Route: 061
  12. REMICADE [Suspect]
     Indication: PYODERMA GANGRENOSUM
     Route: 042
  13. LASIX [Concomitant]
     Indication: OEDEMA PERIPHERAL
     Route: 048
  14. URSODIOL [Concomitant]
     Indication: CHOLANGITIS SCLEROSING
     Route: 048
  15. DOXYCYCLINE [Concomitant]
     Indication: SKIN INFECTION
     Route: 048
  16. DEMEROL [Concomitant]
     Route: 048
  17. ACETAMINOPHEN [Concomitant]
     Indication: PREMEDICATION
     Route: 048

REACTIONS (4)
  - BONE MARROW FAILURE [None]
  - CELLULITIS [None]
  - INFECTION [None]
  - INFUSION RELATED REACTION [None]
